FAERS Safety Report 4286844-8 (Version None)
Quarter: 2004Q1

REPORT INFORMATION
  Report Type: 
  Country: None (occurrence: None)
  Receive Date: 20040204
  Receipt Date: 20040127
  Transmission Date: 20041129
  Serious: Yes (Other)
  Sender: FDA-Public Use
  Company Number: DE-JNJFOC-20040105461

PATIENT
  Age: 25 Year
  Sex: Female
  Weight: 56 kg

DRUGS (4)
  1. ORTHO EVRA [Suspect]
     Indication: CONTRACEPTION
     Dosage: 1 DOSE(S), 3 IN 4 WEEK, TRANSDERMAL
     Route: 062
  2. BETAFERON (INTERFERON BETA) [Suspect]
     Indication: MULTIPLE SCLEROSIS
     Dosage: 1 DOSE(S), 3 IN 1 WEEK, SUBCUTANEOUS
     Route: 058
  3. CITALOPRAM [Concomitant]
  4. LEVOTHYROXINE SODIUM [Concomitant]

REACTIONS (9)
  - ACTIVATED PARTIAL THROMBOPLASTIN TIME PROLONGED [None]
  - ARTHRALGIA [None]
  - BLOOD CREATINE PHOSPHOKINASE INCREASED [None]
  - CARDIOLIPIN ANTIBODY POSITIVE [None]
  - DISTURBANCE IN ATTENTION [None]
  - FATIGUE [None]
  - LABORATORY TEST ABNORMAL [None]
  - MYALGIA [None]
  - RHABDOMYOLYSIS [None]
